FAERS Safety Report 16689268 (Version 2)
Quarter: 2019Q4

REPORT INFORMATION
  Report Type: Spontaneous
  Country: ES (occurrence: ES)
  Receive Date: 20190809
  Receipt Date: 20191206
  Transmission Date: 20200122
  Serious: Yes (Other)
  Sender: FDA-Public Use
  Company Number: ES-MYLANLABS-2019M1074243

PATIENT
  Age: 56 Year
  Sex: Male

DRUGS (1)
  1. LEPONEX [Suspect]
     Active Substance: CLOZAPINE
     Indication: DELUSIONAL DISORDER, PERSECUTORY TYPE
     Dosage: UNK
     Route: 048
     Dates: start: 2014

REACTIONS (2)
  - Hypogammaglobulinaemia [Unknown]
  - Abdominal sepsis [Unknown]

NARRATIVE: CASE EVENT DATE: 2017
